FAERS Safety Report 9361771 (Version 2)
Quarter: 2013Q2

REPORT INFORMATION
  Report Type: Spontaneous
  Country: JP (occurrence: JP)
  Receive Date: 20130621
  Receipt Date: 20130626
  Transmission Date: 20140414
  Serious: Yes (Hospitalization, Other)
  Sender: FDA-Public Use
  Company Number: PHHY2013JP057791

PATIENT
  Age: 84 Year
  Sex: Female

DRUGS (14)
  1. CICLOSPORIN [Suspect]
     Indication: PEMPHIGOID
     Dosage: 200 MG, DAILY
     Route: 048
     Dates: start: 200910
  2. PREDNISOLONE [Suspect]
     Indication: PEMPHIGOID
     Dosage: 10 MG, PER DAY
     Route: 048
  3. PREDNISOLONE [Suspect]
     Dosage: 30 MG, PER DAY
     Route: 048
  4. PREDNISOLONE [Suspect]
     Dosage: 60 MG, PER DAY
     Route: 048
  5. PREDNISOLONE [Suspect]
     Dosage: 30 MG, PER DAY
     Route: 048
  6. PREDNISOLONE [Suspect]
     Dosage: 10 MG, PER DAY
     Route: 048
     Dates: start: 201006
  7. PREDNISOLONE [Suspect]
     Dosage: 20 MG, PER DAY
     Route: 048
  8. PREDNISOLONE [Suspect]
     Dosage: 30 MG, PER DAY
     Route: 048
  9. MINOCYCLINE [Suspect]
     Indication: PEMPHIGOID
     Dosage: 100 MG, DAILY
     Route: 048
  10. NICOTINAMIDE [Suspect]
     Indication: PEMPHIGOID
     Dosage: 900 MG, PER DAY
     Route: 048
  11. RIFAMPICIN [Concomitant]
     Indication: MYCOBACTERIAL INFECTION
     Route: 048
     Dates: start: 200911
  12. ETHAMBUTOL [Concomitant]
     Indication: MYCOBACTERIAL INFECTION
     Route: 048
     Dates: start: 200911
  13. ISONIAZID [Concomitant]
     Indication: MYCOBACTERIAL INFECTION
     Route: 048
     Dates: start: 200911
  14. GLOVENIN [Concomitant]
     Indication: PEMPHIGOID
     Dosage: 400 MG/KG, PER DAY

REACTIONS (7)
  - Pneumonia [Unknown]
  - Pemphigoid [Unknown]
  - Erythema [Unknown]
  - Pruritus [Unknown]
  - Blister [Unknown]
  - Pruritus generalised [Unknown]
  - Disease recurrence [Unknown]
